FAERS Safety Report 17674485 (Version 1)
Quarter: 2020Q2

REPORT INFORMATION
  Report Type: Report from Study
  Country: ES (occurrence: ES)
  Receive Date: 20200416
  Receipt Date: 20200416
  Transmission Date: 20200714
  Serious: Yes (Hospitalization)
  Sender: FDA-Public Use
  Company Number: ES-TEVA-2020-ES-1223886

PATIENT
  Age: 86 Year
  Sex: Male

DRUGS (5)
  1. EMPORTAL 10 G  POLVO PARA SOLUCION ORAL , 20 SOBRES [Concomitant]
     Indication: HEPATIC CIRRHOSIS
     Dosage: 60 GRAM 1 DAYS
     Route: 048
     Dates: start: 20170907
  2. FUROSEMIDA (1615A) [Interacting]
     Active Substance: FUROSEMIDE
     Indication: ASCITES
     Dosage: 60 MG 1 DAYS
     Route: 048
     Dates: start: 20171212, end: 20171218
  3. RIFAXIMINA (2662A) [Concomitant]
     Active Substance: RIFAXIMIN
     Indication: HEPATIC CIRRHOSIS
     Dosage: 1.2 GRAM 1 DAYS
     Route: 048
     Dates: start: 20171127
  4. ALOPURINOL (318A) [Concomitant]
     Active Substance: ALLOPURINOL
     Indication: GOUT
     Dosage: 10 MG 1 DAYS
     Route: 048
     Dates: start: 20151024, end: 20171218
  5. ENALAPRIL MALEATO (2142MA) [Suspect]
     Active Substance: ENALAPRIL MALEATE
     Indication: HYPERTENSION
     Dosage: 20 MG 1 DAYS
     Route: 048
     Dates: start: 20071024, end: 20171218

REACTIONS (2)
  - Drug interaction [Unknown]
  - Acute kidney injury [Recovered/Resolved]

NARRATIVE: CASE EVENT DATE: 20171212
